FAERS Safety Report 13966535 (Version 1)
Quarter: 2017Q3

REPORT INFORMATION
  Report Type: Spontaneous
  Country: US (occurrence: None)
  Receive Date: 20170913
  Receipt Date: 20170913
  Transmission Date: 20171128
  Serious: Yes (Death)
  Sender: FDA-Public Use
  Company Number: None

PATIENT
  Age: 38 Year
  Sex: Male

DRUGS (19)
  1. LONSURF [Suspect]
     Active Substance: TIPIRACIL HYDROCHLORIDE\TRIFLURIDINE
     Indication: GASTROINTESTINAL CARCINOMA
     Dosage: 60/24.57 MG
     Route: 048
     Dates: start: 20170621, end: 20170911
  2. FA [Concomitant]
  3. CHLORPROMAZINE. [Concomitant]
     Active Substance: CHLORPROMAZINE
  4. HYOSCYAMINE. [Concomitant]
     Active Substance: HYOSCYAMINE
  5. MIRTAZAPINE. [Concomitant]
     Active Substance: MIRTAZAPINE
  6. ALMACONE [Concomitant]
     Active Substance: ALUMINUM HYDROXIDE\DIMETHICONE\MAGNESIUM HYDROXIDE
  7. AMITIZA [Concomitant]
     Active Substance: LUBIPROSTONE
  8. METOCLOPRAMIDE. [Concomitant]
     Active Substance: METOCLOPRAMIDE
  9. LACTULOSE. [Concomitant]
     Active Substance: LACTULOSE
  10. LANTUS [Concomitant]
     Active Substance: INSULIN GLARGINE
  11. AMMONIUM LAC [Concomitant]
  12. ONDANSETRON [Concomitant]
     Active Substance: ONDANSETRON
  13. OXYMORPHONE [Concomitant]
     Active Substance: OXYMORPHONE
  14. OMEPRAZOLE. [Concomitant]
     Active Substance: OMEPRAZOLE
  15. HCTZ [Concomitant]
     Active Substance: HYDROCHLOROTHIAZIDE
  16. DOK [Concomitant]
     Active Substance: DOCUSATE SODIUM
  17. METHYLPRED [Concomitant]
     Active Substance: METHYLPREDNISOLONE
  18. LISINOPRIL. [Concomitant]
     Active Substance: LISINOPRIL
  19. FAMOTIDINE. [Concomitant]
     Active Substance: FAMOTIDINE

REACTIONS (1)
  - Death [None]

NARRATIVE: CASE EVENT DATE: 20170911
